FAERS Safety Report 6294979-3 (Version None)
Quarter: 2009Q3

REPORT INFORMATION
  Report Type: 
  Country: None (occurrence: None)
  Receive Date: 20090803
  Receipt Date: 20090727
  Transmission Date: 20100115
  Serious: Yes (Other)
  Sender: FDA-Public Use
  Company Number: JP-MERCK-0907USA05304

PATIENT
  Age: 82 Year
  Sex: Female

DRUGS (2)
  1. COZAAR [Suspect]
     Indication: HYPERTENSION
     Route: 048
     Dates: end: 20090723
  2. AMLODIPINE [Concomitant]
     Indication: HYPERTENSION
     Route: 048

REACTIONS (1)
  - RHABDOMYOLYSIS [None]
